FAERS Safety Report 18467677 (Version 13)
Quarter: 2023Q2

REPORT INFORMATION
  Report Type: Spontaneous
  Country: US (occurrence: US)
  Receive Date: 20201105
  Receipt Date: 20230414
  Transmission Date: 20230721
  Serious: Yes (Other)
  Sender: FDA-Public Use
  Company Number: US-PFIZER INC-2018534560

PATIENT
  Age: 68 Year
  Sex: Female
  Weight: 80.74 kg

DRUGS (6)
  1. PROCARDIA XL [Suspect]
     Active Substance: NIFEDIPINE
     Indication: Hypertension
     Dosage: 80 MG, 1X/DAY
     Route: 048
  2. PROCARDIA XL [Suspect]
     Active Substance: NIFEDIPINE
     Dosage: 60 MG, 1X/DAY
     Route: 048
  3. PROCARDIA XL [Suspect]
     Active Substance: NIFEDIPINE
     Dosage: 90 MG, 1X/DAY, [1 AND A HALF 60MG TABLETS ONCE A DAY BY MOUTH FOR 90MG TOTAL]
     Route: 048
     Dates: start: 202211
  4. PROCARDIA XL [Suspect]
     Active Substance: NIFEDIPINE
     Dosage: 90 MG, 1X/DAY
     Route: 048
  5. TRIAMCINOLONE ACETONIDE [Concomitant]
     Active Substance: TRIAMCINOLONE ACETONIDE
     Dosage: UNK
  6. VITAMINS [Concomitant]
     Active Substance: VITAMINS
     Dosage: UNK

REACTIONS (7)
  - Blood pressure increased [Not Recovered/Not Resolved]
  - Wrong technique in product usage process [Unknown]
  - Product prescribing error [Unknown]
  - Headache [Unknown]
  - Urinary tract infection [Unknown]
  - Stress [Unknown]
  - Body modification [Unknown]

NARRATIVE: CASE EVENT DATE: 20220101
